FAERS Safety Report 23512533 (Version 1)
Quarter: 2024Q1

REPORT INFORMATION
  Report Type: Spontaneous
  Country: CA (occurrence: None)
  Receive Date: 20240209
  Receipt Date: 20240209
  Transmission Date: 20240409
  Serious: No
  Sender: FDA-Public Use
  Company Number: None

PATIENT
  Age: 66 Year
  Sex: Female
  Weight: 119.25 kg

DRUGS (16)
  1. SALONPAS PAIN RELIEF [Suspect]
     Active Substance: MENTHOL\METHYL SALICYLATE
     Indication: Bursitis
     Dosage: OTHER STRENGTH : 10% BENZYL ALCOHOL;?OTHER QUANTITY : 1 TABLESPOON(S);?FREQUENCY : EVERY 6 HOURS;?
     Route: 061
  2. SALONPAS PAIN RELIEF [Suspect]
     Active Substance: MENTHOL\METHYL SALICYLATE
     Indication: Arthritis
  3. OXIBUTIN [Concomitant]
  4. METFORMIN [Concomitant]
     Active Substance: METFORMIN HYDROCHLORIDE
  5. GLICLAZIDE [Concomitant]
     Active Substance: GLICLAZIDE
  6. CLONAZEPAM [Concomitant]
     Active Substance: CLONAZEPAM
  7. BUPROPION [Concomitant]
     Active Substance: BUPROPION
  8. FLUOXETINE [Concomitant]
     Active Substance: FLUOXETINE HYDROCHLORIDE
  9. SYNTHROID [Concomitant]
     Active Substance: LEVOTHYROXINE SODIUM
  10. AMLODIPINE [Concomitant]
     Active Substance: AMLODIPINE BESYLATE
  11. VALSARTAN [Concomitant]
     Active Substance: VALSARTAN
  12. ROSUVASTATIN [Concomitant]
     Active Substance: ROSUVASTATIN
  13. OMEPRAZOLE [Concomitant]
     Active Substance: OMEPRAZOLE
  14. CALCIUM [Concomitant]
     Active Substance: CALCIUM
  15. VITAMIN D [Concomitant]
     Active Substance: VITAMIN D NOS
  16. VITAMIN B12 [Concomitant]
     Active Substance: CYANOCOBALAMIN

REACTIONS (3)
  - Application site pain [None]
  - Application site pruritus [None]
  - Application site rash [None]

NARRATIVE: CASE EVENT DATE: 20240205
